FAERS Safety Report 5907127-3 (Version None)
Quarter: 2008Q4

REPORT INFORMATION
  Report Type: 
  Country: None (occurrence: None)
  Receive Date: 20081003
  Receipt Date: 20080925
  Transmission Date: 20090506
  Serious: Yes (Other)
  Sender: FDA-Public Use
  Company Number: US-BAYER-200813877BCC

PATIENT
  Age: 75 Year
  Sex: Male
  Weight: 77 kg

DRUGS (6)
  1. ALEVE [Suspect]
     Indication: ARTHRALGIA
     Dosage: TOTAL DAILY DOSE: 220 MG  UNIT DOSE: 220 MG
     Route: 048
     Dates: start: 20080301, end: 20080301
  2. PRAVACHOL [Concomitant]
  3. GLYBURIDE [Concomitant]
  4. WARFARIN SODIUM [Concomitant]
  5. NIACIN [Concomitant]
  6. GLUCOSAMINE AND CHONDROITIN [Concomitant]

REACTIONS (1)
  - BLOOD PRESSURE INCREASED [None]
